FAERS Safety Report 6222770-2 (Version None)
Quarter: 2009Q2

REPORT INFORMATION
  Report Type: 
  Country: None (occurrence: None)
  Receive Date: 20090611
  Receipt Date: 20090602
  Transmission Date: 20091009
  Serious: Yes (Death)
  Sender: FDA-Public Use
  Company Number: A0789578A

PATIENT
  Sex: Female

DRUGS (8)
  1. ADVAIR HFA [Suspect]
     Indication: DRUG USE FOR UNKNOWN INDICATION
     Route: 065
  2. CHANTIX [Suspect]
     Route: 065
     Dates: start: 20070101
  3. ETHANOL [Suspect]
     Indication: DRUG USE FOR UNKNOWN INDICATION
     Route: 065
  4. ALBUTEROL [Suspect]
     Indication: DRUG USE FOR UNKNOWN INDICATION
     Route: 065
  5. KLONOPIN [Suspect]
     Indication: DRUG USE FOR UNKNOWN INDICATION
     Route: 065
  6. BLOOD PRESSURE MEDICATION [Suspect]
  7. OTHER MEDICATIONS [Concomitant]
  8. OXYGEN [Concomitant]

REACTIONS (2)
  - DEATH [None]
  - POISONING [None]
